FAERS Safety Report 10307523 (Version 4)
Quarter: 2018Q4

REPORT INFORMATION
  Report Type: Spontaneous
  Country: FR (occurrence: FR)
  Receive Date: 20140716
  Receipt Date: 20181027
  Transmission Date: 20190204
  Serious: Yes (Death, Hospitalization, Disabling, Other)
  Sender: FDA-Public Use
  Company Number: FR-009507513-1407FRA005459

PATIENT
  Age: 79 Year
  Sex: Female

DRUGS (6)
  1. PROLIA [Suspect]
     Active Substance: DENOSUMAB
     Indication: OSTEOPOROTIC FRACTURE
     Dosage: 1 DF, ONCE
     Route: 058
     Dates: start: 20140310, end: 20140310
  2. CALDINE [Concomitant]
     Active Substance: LACIDIPINE
  3. DIPROSTENE [Suspect]
     Active Substance: BETAMETHASONE DIPROPIONATE\BETAMETHASONE SODIUM PHOSPHATE
     Indication: BACK PAIN
     Dosage: UNK
     Route: 014
     Dates: start: 20140310, end: 20140310
  4. LIPANTHYL [Concomitant]
     Active Substance: FENOFIBRATE
  5. PRETERAX (INDAPAMIDE (+) PERINDOPRIL ARGININE) [Concomitant]
     Active Substance: INDAPAMIDE\PERINDOPRIL
  6. CALCIDOSE [Concomitant]
     Active Substance: CALCIUM CARBONATE

REACTIONS (11)
  - Dyskinesia [Fatal]
  - Dysarthria [Fatal]
  - Facial bones fracture [Unknown]
  - Dysphagia [Unknown]
  - Extrapyramidal disorder [Fatal]
  - Fall [Fatal]
  - Wrist fracture [Recovered/Resolved]
  - Muscular weakness [Fatal]
  - Upper motor neurone lesion [Unknown]
  - Amyotrophic lateral sclerosis [Fatal]
  - Balance disorder [Fatal]

NARRATIVE: CASE EVENT DATE: 20140325
